FAERS Safety Report 6031163-2 (Version None)
Quarter: 2008Q4

REPORT INFORMATION
  Report Type: 
  Country: None (occurrence: None)
  Receive Date: 20081224
  Receipt Date: 20080528
  Transmission Date: 20090506
  Serious: Yes (Other)
  Sender: FDA-Public Use
  Company Number: DSA_31918_2008

PATIENT
  Age: 90 Year
  Sex: Female

DRUGS (6)
  1. CARDIZEM [Suspect]
     Dosage: SEE IMAGE
     Dates: start: 20080401
  2. ASPIRIN [Concomitant]
  3. LUMIGAN [Concomitant]
  4. ALPHAGAN  /01341101/ [Concomitant]
  5. TRUSOPT [Concomitant]
  6. DUONEB [Concomitant]

REACTIONS (2)
  - ACCIDENTAL OVERDOSE [None]
  - BLOOD PRESSURE DECREASED [None]
